FAERS Safety Report 6911258-9 (Version None)
Quarter: 2010Q3

REPORT INFORMATION
  Report Type: 
  Country: None (occurrence: None)
  Receive Date: 20100806
  Receipt Date: 20100727
  Transmission Date: 20110219
  Serious: Yes (Other)
  Sender: FDA-Public Use
  Company Number: PHHY2010US50080

PATIENT
  Age: 80 Year
  Sex: Female
  Weight: 120 kg

DRUGS (1)
  1. FEMARA [Suspect]
     Indication: BREAST CANCER METASTATIC
     Dosage: 2.5 MG, QD
     Route: 048
     Dates: start: 20100315, end: 20100701

REACTIONS (2)
  - RASH [None]
  - SKIN ULCER [None]
